FAERS Safety Report 8098393-X (Version None)
Quarter: 2012Q1

REPORT INFORMATION
  Report Type: 
  Country: None (occurrence: None)
  Receive Date: 20120131
  Receipt Date: 20120121
  Transmission Date: 20120608
  Serious: Yes (Hospitalization)
  Sender: FDA-Public Use
  Company Number: KR-MPIJNJ-2012-00510

PATIENT

DRUGS (16)
  1. MONTELUKAST [Concomitant]
     Indication: RHINITIS
     Dosage: 10 MG, UNK
     Route: 048
     Dates: start: 20101223
  2. GENTAMICIN SULFATE [Concomitant]
     Indication: CATARACT OPERATION
     Dosage: 80 MG, UNK
     Route: 042
     Dates: start: 20110325, end: 20110325
  3. GABAPENTIN [Concomitant]
     Indication: NEUROPATHY PERIPHERAL
     Dosage: 400 MG, UNK
     Route: 048
     Dates: start: 20110221
  4. AMITRIPTYLINE HCL [Concomitant]
     Dosage: 10 MG, UNK
     Route: 048
     Dates: start: 20110331
  5. FUROSEMIDE [Concomitant]
     Indication: OEDEMA
     Dosage: 20 MG, UNK
     Route: 048
     Dates: start: 20110328, end: 20110418
  6. DEXAMETHASONE SODIUM PHOSPHATE [Concomitant]
     Indication: MULTIPLE MYELOMA
     Dosage: 20 MG, UNK
     Route: 042
     Dates: start: 20101213, end: 20110407
  7. XYZAL [Concomitant]
     Indication: BENIGN PROSTATIC HYPERPLASIA
     Dosage: 5 MG, UNK
     Route: 048
     Dates: start: 20101213
  8. EXFORGE [Concomitant]
     Indication: HYPOTENSION
     Dosage: 5 MG, UNK
     Route: 048
     Dates: start: 20110328
  9. VELCADE [Suspect]
     Indication: MULTIPLE MYELOMA
     Dosage: 1.3 MG/M2, UNK
     Dates: start: 20101013, end: 20110407
  10. TERAZOSIN HCL [Concomitant]
     Indication: BENIGN PROSTATIC HYPERPLASIA
     Dosage: 4 MG, UNK
     Route: 048
     Dates: start: 20110117
  11. EBASTINE [Concomitant]
     Indication: RHINITIS
     Dosage: 10 MG, UNK
     Route: 048
     Dates: start: 20101223
  12. LEVOFLOXACIN [Concomitant]
     Indication: BRONCHITIS
     Dosage: 750 MG, UNK
     Route: 048
     Dates: start: 20110331, end: 20110406
  13. COUGH SYRUP [Concomitant]
     Indication: BRONCHITIS
     Dosage: 20 ML, UNK
     Dates: start: 20110331, end: 20110406
  14. AMITRIPTYLINE HCL [Concomitant]
     Indication: NEUROPATHY PERIPHERAL
     Dosage: 5 MG, UNK
     Route: 048
     Dates: start: 20110131, end: 20110320
  15. ACETYLCYSTEINE [Concomitant]
     Indication: PRODUCTIVE COUGH
     Dosage: 200 MG, UNK
     Route: 048
     Dates: start: 20110331, end: 20110406
  16. CEFOLACTAM [Concomitant]
     Indication: CATARACT OPERATION
     Dosage: 1 G, UNK
     Route: 042
     Dates: start: 20110325, end: 20110326

REACTIONS (3)
  - RENAL IMPAIRMENT [None]
  - FATIGUE [None]
  - CATARACT [None]
